FAERS Safety Report 25201621 (Version 1)
Quarter: 2025Q2

REPORT INFORMATION
  Report Type: Spontaneous
  Country: GB (occurrence: GB)
  Receive Date: 20250416
  Receipt Date: 20250416
  Transmission Date: 20250716
  Serious: Yes (Hospitalization)
  Sender: Alora Pharma
  Company Number: GB-VERTICAL PHARMACEUTICALS-2025ALO02144

PATIENT
  Age: 61 Year

DRUGS (2)
  1. ESTRADIOL [Suspect]
     Active Substance: ESTRADIOL
     Indication: Gender reassignment therapy
     Dosage: 2.5 MG, 2X/DAY
     Dates: start: 1998, end: 2018
  2. CYPROTERONE ACETATE [Suspect]
     Active Substance: CYPROTERONE ACETATE
     Indication: Gender reassignment therapy
     Dosage: 100 MG, 2X/DAY
     Dates: start: 2012, end: 2018

REACTIONS (1)
  - Meningioma [Recovering/Resolving]

NARRATIVE: CASE EVENT DATE: 20130801
